FAERS Safety Report 7798820-9 (Version None)
Quarter: 2011Q4

REPORT INFORMATION
  Report Type: 
  Country: None (occurrence: None)
  Receive Date: 20111005
  Receipt Date: 20111005
  Transmission Date: 20120403
  Serious: No
  Sender: FDA-Public Use
  Company Number: None

PATIENT
  Sex: Male
  Weight: 101.2 kg

DRUGS (8)
  1. CYCLOPHOSPHAMIDE [Suspect]
     Dosage: 2300 MG
  2. DEXAMETHASONE [Suspect]
     Dosage: 308 MG
  3. THIOGUANINE [Suspect]
     Dosage: 1680 MG
  4. VINCRISTINE SULFATE [Suspect]
     Dosage: 10 MG
  5. CYTARABINE [Suspect]
     Dosage: 1382 MG
  6. PEG-L- ASPARAGINASE (K- H) [Suspect]
     Dosage: 11355 UNIT
  7. DOXORUBICIN HCL [Suspect]
     Dosage: 171 MG
  8. METHOTREXATE [Suspect]
     Dosage: 45 MG

REACTIONS (2)
  - PLATELET COUNT DECREASED [None]
  - HAEMOGLOBIN DECREASED [None]
